FAERS Safety Report 8290202-9 (Version None)
Quarter: 2012Q2

REPORT INFORMATION
  Report Type: 
  Country: None (occurrence: None)
  Receive Date: 20120417
  Receipt Date: 20120405
  Transmission Date: 20120825
  Serious: Yes (Hospitalization)
  Sender: FDA-Public Use
  Company Number: RU-ACTELION-A-CH2012-63746

PATIENT
  Age: 16 Year
  Sex: Male

DRUGS (4)
  1. TRACLEER [Suspect]
     Dosage: 62.5 MG, BID
     Route: 048
     Dates: start: 20110801
  2. ASPIRIN [Concomitant]
  3. TRACLEER [Suspect]
     Indication: PULMONARY ARTERIAL HYPERTENSION
     Dosage: 125 MG, BID
     Route: 048
     Dates: start: 20110901
  4. CAPOTEN [Concomitant]

REACTIONS (1)
  - PEPTIC ULCER HAEMORRHAGE [None]
